FAERS Safety Report 25091595 (Version 3)
Quarter: 2025Q3

REPORT INFORMATION
  Report Type: Spontaneous
  Country: US (occurrence: US)
  Receive Date: 20250318
  Receipt Date: 20250916
  Transmission Date: 20251021
  Serious: No
  Sender: SANOFI AVENTIS
  Company Number: US-SA-2025SA077480

PATIENT
  Age: 8 Month
  Sex: Male

DRUGS (2)
  1. DUPIXENT [Suspect]
     Active Substance: DUPILUMAB
     Indication: Dermatitis atopic
     Dosage: 200 MG, Q4W
     Route: 058
     Dates: start: 20250122, end: 202506
  2. DUPIXENT [Suspect]
     Active Substance: DUPILUMAB
     Indication: Eczema

REACTIONS (12)
  - Pyrexia [Unknown]
  - Illness [Unknown]
  - Skin swelling [Unknown]
  - Rebound effect [Unknown]
  - Insomnia [Unknown]
  - Nasopharyngitis [Unknown]
  - Eczema [Recovered/Resolved]
  - Erythema [Unknown]
  - Pruritus [Unknown]
  - Rash [Unknown]
  - Rebound effect [Unknown]
  - Product dose omission in error [Unknown]

NARRATIVE: CASE EVENT DATE: 20250101
